FAERS Safety Report 11488292 (Version 1)
Quarter: 2015Q3

REPORT INFORMATION
  Report Type: Spontaneous
  Country: US (occurrence: US)
  Receive Date: 20150910
  Receipt Date: 20150910
  Transmission Date: 20151125
  Serious: No
  Sender: FDA-Public Use
  Company Number: US-ROCHE-1450082

PATIENT
  Sex: Male

DRUGS (3)
  1. PEGASYS [Suspect]
     Active Substance: PEGINTERFERON ALFA-2A
     Indication: CHRONIC HEPATITIS C
     Route: 065
     Dates: end: 20140806
  2. SOVALDI [Suspect]
     Active Substance: SOFOSBUVIR
     Indication: CHRONIC HEPATITIS C
     Route: 065
     Dates: end: 20140806
  3. RIBASPHERE RIBAPAK [Suspect]
     Active Substance: RIBAVIRIN
     Indication: CHRONIC HEPATITIS C
     Dosage: DIVIDED DOSES
     Route: 065
     Dates: end: 20140806

REACTIONS (8)
  - Asthenia [Unknown]
  - Fatigue [Unknown]
  - Memory impairment [Unknown]
  - Headache [Unknown]
  - Insomnia [Unknown]
  - Chills [Unknown]
  - Anxiety [Unknown]
  - Dyspnoea [Unknown]

NARRATIVE: CASE EVENT DATE: 1999
